FAERS Safety Report 24161972 (Version 1)
Quarter: 2024Q3

REPORT INFORMATION
  Report Type: Other
  Country: MA (occurrence: MA)
  Receive Date: 20240801
  Receipt Date: 20240801
  Transmission Date: 20241016
  Serious: Yes (Hospitalization, Other)
  Sender: INNOGENIX
  Company Number: MA-Innogenix, LLC-2159874

PATIENT
  Age: 17 Year
  Sex: Male

DRUGS (2)
  1. METRONIDAZOLE [Suspect]
     Active Substance: METRONIDAZOLE
     Indication: Diarrhoea
     Route: 065
  2. METRONIDAZOLE [Suspect]
     Active Substance: METRONIDAZOLE
     Indication: Pyrexia

REACTIONS (2)
  - Cerebellar syndrome [Recovered/Resolved]
  - Product use in unapproved indication [Unknown]
